FAERS Safety Report 4327515-9 (Version None)
Quarter: 2004Q1

REPORT INFORMATION
  Report Type: 
  Country: None (occurrence: None)
  Receive Date: 20040330
  Receipt Date: 20040330
  Transmission Date: 20041129
  Serious: Yes (Hospitalization)
  Sender: FDA-Public Use
  Company Number: None

PATIENT
  Age: 45 Year
  Sex: Male
  Weight: 151 kg

DRUGS (18)
  1. CISPLATIN [Suspect]
     Indication: TONSIL CANCER
     Dosage: 192 MG, 186 MG
     Dates: start: 20040219
  2. CISPLATIN [Suspect]
     Indication: TONSIL CANCER
     Dosage: 192 MG, 186 MG
     Dates: start: 20040311
  3. . [Concomitant]
  4. FERROUS SULFATE TAB [Concomitant]
  5. MORPHINE HCL ELIXIR [Concomitant]
  6. PEPCID [Concomitant]
  7. MAGNESIUM OXIDE [Concomitant]
  8. KYTRIL [Concomitant]
  9. PHENERGAN [Concomitant]
  10. CEFEPIME [Concomitant]
  11. VANCOMYCIN [Concomitant]
  12. D51/2 NS @100/HR [Concomitant]
  13. OSCAL [Concomitant]
  14. K-DUR 10 [Concomitant]
  15. NYSTATIN [Concomitant]
  16. DURAGESIC [Concomitant]
  17. MAALOX [Concomitant]
  18. TYLENOL (CAPLET) [Concomitant]

REACTIONS (4)
  - BODY TEMPERATURE INCREASED [None]
  - INFECTION [None]
  - NEUTROPHIL COUNT DECREASED [None]
  - WHITE BLOOD CELL COUNT DECREASED [None]
